FAERS Safety Report 23433374 (Version 1)
Quarter: 2024Q1

REPORT INFORMATION
  Report Type: Spontaneous
  Country: NL (occurrence: NL)
  Receive Date: 20240123
  Receipt Date: 20240123
  Transmission Date: 20240409
  Serious: Yes (Other)
  Sender: FDA-Public Use
  Company Number: NL-FreseniusKabi-FK202400663

PATIENT
  Age: 64 Year
  Sex: Female
  Weight: 71 kg

DRUGS (3)
  1. OXALIPLATIN [Suspect]
     Active Substance: OXALIPLATIN
     Indication: Pancreatic carcinoma
     Dosage: FIRST CYCLE TWO WEEKS AGO.
  2. OXALIPLATIN [Suspect]
     Active Substance: OXALIPLATIN
     Dosage: ADMINISTERED AT HALF-RATE ?150 MG Q2W?ROUTE OF ADMIN: INTRAVENOUS
     Route: 042
     Dates: start: 20240102, end: 20240102
  3. CLEMASTINE FUMARATE [Concomitant]
     Active Substance: CLEMASTINE FUMARATE
     Indication: Product used for unknown indication

REACTIONS (3)
  - Muscle twitching [Recovered/Resolved]
  - Ataxia [Recovered/Resolved]
  - Dysphagia [Recovered/Resolved]

NARRATIVE: CASE EVENT DATE: 20240102
